FAERS Safety Report 4424858-5 (Version None)
Quarter: 2004Q3

REPORT INFORMATION
  Report Type: 
  Country: None (occurrence: None)
  Receive Date: 20040809
  Receipt Date: 20040723
  Transmission Date: 20050211
  Serious: Yes (Hospitalization)
  Sender: FDA-Public Use
  Company Number: 2004-BP-04717NB

PATIENT
  Age: 67 Year
  Sex: Male

DRUGS (1)
  1. BI-SIFROL TABLETS (PRAMIPEXOLE DIHYDROCHLORIDE) (TA) [Suspect]
     Indication: RESTLESS LEGS SYNDROME
     Dosage: 0.125 MG (0.125 MG) PO
     Route: 048
     Dates: start: 20040518, end: 20040601

REACTIONS (3)
  - NAUSEA [None]
  - SLEEP APNOEA SYNDROME [None]
  - TRANSIENT ISCHAEMIC ATTACK [None]
